FAERS Safety Report 10639787 (Version 2)
Quarter: 2015Q1

REPORT INFORMATION
  Report Type: Report from Study
  Country: BR (occurrence: BR)
  Receive Date: 20141209
  Receipt Date: 20150129
  Transmission Date: 20150720
  Serious: Yes (Hospitalization)
  Sender: FDA-Public Use
  Company Number: BR-ROCHE-1503481

PATIENT
  Age: 46 Year
  Sex: Female
  Weight: 65 kg

DRUGS (6)
  1. ARAVA [Concomitant]
     Active Substance: LEFLUNOMIDE
  2. MABTHERA [Suspect]
     Active Substance: RITUXIMAB
     Route: 042
     Dates: start: 201501
  3. MABTHERA [Suspect]
     Active Substance: RITUXIMAB
     Indication: RHEUMATOID ARTHRITIS
     Route: 042
     Dates: start: 20140514, end: 20140529
  4. ARADOIS [Concomitant]
     Active Substance: LOSARTAN POTASSIUM
  5. SINVALIP [Concomitant]
  6. MABTHERA [Suspect]
     Active Substance: RITUXIMAB
     Dosage: ON DAY 1 AND DAY 15.
     Route: 042
     Dates: start: 201405

REACTIONS (8)
  - Ill-defined disorder [Not Recovered/Not Resolved]
  - Bone disorder [Unknown]
  - Pain [Not Recovered/Not Resolved]
  - Hypersensitivity [Not Recovered/Not Resolved]
  - Red blood cell sedimentation rate increased [Not Recovered/Not Resolved]
  - Pain in extremity [Not Recovered/Not Resolved]
  - Arthritis [Not Recovered/Not Resolved]
  - Arthralgia [Not Recovered/Not Resolved]

NARRATIVE: CASE EVENT DATE: 201501
